FAERS Safety Report 9705051 (Version 1)
Quarter: 2013Q4

REPORT INFORMATION
  Report Type: Spontaneous
  Country: US (occurrence: US)
  Receive Date: 20131122
  Receipt Date: 20131122
  Transmission Date: 20140711
  Serious: No
  Sender: FDA-Public Use
  Company Number: US-ABBVIE-13P-163-1135382-00

PATIENT
  Sex: Female
  Weight: 10.9 kg

DRUGS (1)
  1. ANDROGEL [Suspect]
     Indication: ILL-DEFINED DISORDER

REACTIONS (3)
  - Psychomotor hyperactivity [Not Recovered/Not Resolved]
  - Accidental exposure to product [Not Recovered/Not Resolved]
  - Hair growth abnormal [Not Recovered/Not Resolved]
